FAERS Safety Report 21303475 (Version 1)
Quarter: 2022Q3

REPORT INFORMATION
  Report Type: Spontaneous
  Country: IL (occurrence: IL)
  Receive Date: 20220907
  Receipt Date: 20220907
  Transmission Date: 20221027
  Serious: Yes (Hospitalization, Other)
  Sender: FDA-Public Use
  Company Number: IL-AMGEN-ISRSP2022151082

PATIENT
  Age: 34 Year
  Sex: Male

DRUGS (1)
  1. NEUPOGEN [Suspect]
     Active Substance: FILGRASTIM
     Indication: Haematopoietic stem cell mobilisation
     Dosage: 4 DAY COURSE
     Route: 065

REACTIONS (3)
  - Glomerulonephritis rapidly progressive [Not Recovered/Not Resolved]
  - Epistaxis [Unknown]
  - Influenza like illness [Unknown]
